FAERS Safety Report 20829385 (Version 1)
Quarter: 2022Q2

REPORT INFORMATION
  Report Type: Spontaneous
  Country: US (occurrence: US)
  Receive Date: 20220513
  Receipt Date: 20220513
  Transmission Date: 20220721
  Serious: No
  Sender: FDA-Public Use
  Company Number: US-SA-SAC20220512001030

PATIENT
  Sex: Female

DRUGS (16)
  1. DUPIXENT [Suspect]
     Active Substance: DUPILUMAB
     Indication: Asthma
     Dosage: 300 MG, QOW
     Route: 058
  2. DUPIXENT [Suspect]
     Active Substance: DUPILUMAB
     Indication: Illness
  3. RIFAMPIN [Concomitant]
     Active Substance: RIFAMPIN
  4. CALCIUM\CHOLECALCIFEROL [Concomitant]
     Active Substance: CALCIUM\CHOLECALCIFEROL
  5. VITAMIN D NOS [Concomitant]
     Active Substance: VITAMIN D NOS
  6. PEPCID [Concomitant]
     Active Substance: FAMOTIDINE
  7. SIRTURO [Concomitant]
     Active Substance: BEDAQUILINE FUMARATE
  8. CLOFAZIMINE [Concomitant]
     Active Substance: CLOFAZIMINE
     Dosage: POWDER
  9. NUZYRA [Concomitant]
     Active Substance: OMADACYCLINE
     Dosage: VIAL
  10. BROVANA [Concomitant]
     Active Substance: ARFORMOTEROL TARTRATE
  11. PROAIR HFA [Concomitant]
     Active Substance: ALBUTEROL SULFATE
  12. SINGULAIR [Concomitant]
     Active Substance: MONTELUKAST SODIUM
  13. SYNTHROID [Concomitant]
     Active Substance: LEVOTHYROXINE SODIUM
  14. PROBIOTIC ACIDOPHILUS [LACTOBACILLUS ACIDOPHILUS] [Concomitant]
  15. VITAMINS NOS [Concomitant]
     Active Substance: VITAMINS
  16. ZYRTEC [Concomitant]
     Active Substance: CETIRIZINE HYDROCHLORIDE

REACTIONS (2)
  - Nausea [Not Recovered/Not Resolved]
  - Vomiting [Not Recovered/Not Resolved]
